FAERS Safety Report 8885299 (Version 4)
Quarter: 2013Q1

REPORT INFORMATION
  Report Type: Spontaneous
  Country: JP (occurrence: JP)
  Receive Date: 20121102
  Receipt Date: 20130123
  Transmission Date: 20140127
  Serious: Yes (Hospitalization)
  Sender: FDA-Public Use
  Company Number: JP-009507513-1210JPN013107

PATIENT
  Age: 40 Year
  Sex: Female
  Weight: 55.8 kg

DRUGS (12)
  1. GASTER D [Suspect]
     Indication: POSTOPERATIVE CARE
     Dosage: 20 MG, BID
     Route: 048
     Dates: start: 20120724, end: 20120803
  2. CELECOX [Suspect]
     Indication: PROCEDURAL PAIN
     Dosage: 100 MG, BID
     Route: 048
     Dates: start: 20120723, end: 20120803
  3. PREDONINE [Suspect]
     Indication: POSTOPERATIVE CARE
     Dosage: 30 MG, BID
     Route: 048
     Dates: start: 20120724, end: 20120726
  4. PREDONINE [Suspect]
     Dosage: 20 MG, BID
     Route: 048
     Dates: start: 20120727, end: 20120729
  5. PREDONINE [Suspect]
     Dosage: 10 MG, BID
     Route: 048
     Dates: start: 20120730, end: 20120802
  6. PREDONINE [Suspect]
     Dosage: 5 MG, BID
     Route: 048
     Dates: start: 20120803, end: 20120806
  7. PREDNISOLONE SODIUM SUCCINATE [Suspect]
     Indication: POSTOPERATIVE CARE
     Dosage: 40 MG, TID
     Route: 041
     Dates: start: 201207, end: 201207
  8. PREDNISOLONE SODIUM SUCCINATE [Suspect]
     Dosage: 40 MG, BID
     Route: 041
     Dates: start: 201207, end: 201207
  9. MERISLON [Concomitant]
     Indication: POSTOPERATIVE CARE
     Dosage: UNK
     Route: 048
     Dates: start: 20120723
  10. METHYCOBAL [Concomitant]
     Indication: POSTOPERATIVE CARE
     Dosage: UNK
     Route: 048
     Dates: start: 20120723
  11. ULTIVA [Concomitant]
     Indication: ANAESTHESIA PROCEDURE
     Dosage: UNK
     Dates: start: 20120719
  12. PROPOFOL [Concomitant]
     Indication: ANAESTHESIA PROCEDURE
     Dosage: UNK
     Dates: start: 20120719

REACTIONS (2)
  - Drug eruption [Recovering/Resolving]
  - Intentional drug misuse [Unknown]
